FAERS Safety Report 5494595-7 (Version None)
Quarter: 2007Q4

REPORT INFORMATION
  Report Type: 
  Country: None (occurrence: None)
  Receive Date: 20071015
  Receipt Date: 20070817
  Transmission Date: 20080405
  Serious: No
  Sender: FDA-Public Use
  Company Number: 2007SP002892

PATIENT
  Age: 42 Year
  Sex: Female
  Weight: 46.2669 kg

DRUGS (2)
  1. LUNESTA [Suspect]
     Dosage: 3 MG; PRN; ORAL
     Route: 048
  2. CLARINEX [Suspect]

REACTIONS (1)
  - AMNESIA [None]
